FAERS Safety Report 21887122 (Version 1)
Quarter: 2023Q1

REPORT INFORMATION
  Report Type: Report from Study
  Country: PR (occurrence: PR)
  Receive Date: 20230119
  Receipt Date: 20230119
  Transmission Date: 20230418
  Serious: Yes (Hospitalization)
  Sender: FDA-Public Use
  Company Number: PR-ABBVIE-4275477

PATIENT
  Sex: Female
  Weight: 87.543 kg

DRUGS (1)
  1. VENCLEXTA [Suspect]
     Active Substance: VENETOCLAX
     Indication: Myelodysplastic syndrome
     Route: 048
     Dates: start: 20220930

REACTIONS (2)
  - Platelet count decreased [Unknown]
  - Haemoglobin decreased [Unknown]
